FAERS Safety Report 4651869-7 (Version None)
Quarter: 2005Q2

REPORT INFORMATION
  Report Type: 
  Country: None (occurrence: None)
  Receive Date: 20050504
  Receipt Date: 20041203
  Transmission Date: 20051028
  Serious: Yes (Other)
  Sender: FDA-Public Use
  Company Number: GB-GLAXOSMITHKLINE-B0360412A

PATIENT
  Sex: Male

DRUGS (1)
  1. PAROXETINE HYDROCHLORIDE [Suspect]
     Route: 065

REACTIONS (6)
  - AGGRESSION [None]
  - ANGER [None]
  - ILL-DEFINED DISORDER [None]
  - IRRITABILITY [None]
  - SUICIDAL IDEATION [None]
  - TENSION [None]
